FAERS Safety Report 6072117-X (Version None)
Quarter: 2009Q1

REPORT INFORMATION
  Report Type: 
  Country: None (occurrence: None)
  Receive Date: 20090210
  Receipt Date: 20090209
  Transmission Date: 20090719
  Serious: Yes (Other)
  Sender: FDA-Public Use
  Company Number: JP-BAYER-200910343BYL

PATIENT
  Age: 74 Year
  Sex: Female

DRUGS (4)
  1. ASPIRIN [Suspect]
     Indication: ATRIAL FIBRILLATION
     Route: 048
     Dates: start: 20070418, end: 20070509
  2. ASPIRIN [Suspect]
     Route: 048
     Dates: start: 20070613, end: 20070628
  3. WARFARIN [Suspect]
     Indication: ATRIAL FIBRILLATION
     Route: 048
     Dates: start: 20070101, end: 20070411
  4. WARFARIN [Suspect]
     Route: 048
     Dates: start: 20070510, end: 20070601

REACTIONS (3)
  - HAEMOGLOBINURIA [None]
  - HAEMOLYSIS [None]
  - VASCULAR SHUNT [None]
